FAERS Safety Report 9173095 (Version 4)
Quarter: 2014Q1

REPORT INFORMATION
  Report Type: Spontaneous
  Country: US (occurrence: US)
  Receive Date: 20130320
  Receipt Date: 20140120
  Transmission Date: 20141002
  Serious: No
  Sender: FDA-Public Use
  Company Number: US-BIOGENIDEC-2013BI023988

PATIENT
  Age: 37 Year
  Sex: Female

DRUGS (8)
  1. TYSABRI [Suspect]
     Indication: MULTIPLE SCLEROSIS
     Route: 042
     Dates: start: 20120907, end: 20130530
  2. LITHIUM [Concomitant]
     Indication: BIPOLAR DISORDER
  3. TEGRETOL [Concomitant]
     Indication: BIPOLAR DISORDER
  4. TEGRETOL [Concomitant]
     Indication: CONVULSION
  5. METHADONE [Concomitant]
     Indication: PAIN IN EXTREMITY
  6. METHADONE [Concomitant]
     Indication: NECK PAIN
  7. METHADONE [Concomitant]
     Indication: MUSCULOSKELETAL PAIN
  8. ADDERALL [Concomitant]

REACTIONS (15)
  - Impaired gastric emptying [Not Recovered/Not Resolved]
  - Weight decreased [Not Recovered/Not Resolved]
  - Catheter site pain [Not Recovered/Not Resolved]
  - Catheter site erythema [Not Recovered/Not Resolved]
  - Central venous catheterisation [Recovered/Resolved]
  - Poor venous access [Not Recovered/Not Resolved]
  - Depressed mood [Not Recovered/Not Resolved]
  - Vision blurred [Recovered/Resolved]
  - Feeling abnormal [Recovered/Resolved]
  - Astigmatism [Not Recovered/Not Resolved]
  - Migraine [Recovered/Resolved]
  - Multiple sclerosis [Unknown]
  - Oropharyngeal pain [Not Recovered/Not Resolved]
  - Multiple sclerosis relapse [Not Recovered/Not Resolved]
  - Vomiting [Not Recovered/Not Resolved]
